FAERS Safety Report 6632211-9 (Version None)
Quarter: 2010Q1

REPORT INFORMATION
  Report Type: 
  Country: None (occurrence: None)
  Receive Date: 20100312
  Receipt Date: 20100301
  Transmission Date: 20100710
  Serious: Yes (Life-Threatening)
  Sender: FDA-Public Use
  Company Number: US-MPIJNJ-2010-01455

PATIENT
  Sex: Male
  Weight: 114.9 kg

DRUGS (2)
  1. VELCADE [Suspect]
     Indication: NON-SMALL CELL LUNG CANCER
     Dosage: 0.7 MG/M2, CYCLIC
     Route: 040
     Dates: start: 20100208, end: 20100218
  2. VORINOSTAT [Suspect]
     Indication: NON-SMALL CELL LUNG CANCER
     Dosage: 400 MG, CYCLIC
     Route: 048
     Dates: start: 20100208, end: 20100221

REACTIONS (1)
  - PULMONARY EMBOLISM [None]
